FAERS Safety Report 15733873 (Version 1)
Quarter: 2018Q4

REPORT INFORMATION
  Report Type: Spontaneous
  Country: JP (occurrence: JP)
  Receive Date: 20181218
  Receipt Date: 20181218
  Transmission Date: 20190205
  Serious: Yes (Other)
  Sender: FDA-Public Use
  Company Number: JP-ROCHE-2229059

PATIENT
  Age: 5 Decade
  Sex: Male

DRUGS (1)
  1. ALTEPLASE. [Suspect]
     Active Substance: ALTEPLASE
     Indication: ISCHAEMIC STROKE
     Dosage: FOR 2 HOURS 38 MINUTES
     Route: 042

REACTIONS (3)
  - Cardiac ventricular thrombosis [Recovering/Resolving]
  - Atrial thrombosis [Recovering/Resolving]
  - Embolism arterial [Recovering/Resolving]
